FAERS Safety Report 25988909 (Version 1)
Quarter: 2025Q4

REPORT INFORMATION
  Report Type: Spontaneous
  Country: US (occurrence: US)
  Receive Date: 20251103
  Receipt Date: 20251103
  Transmission Date: 20260117
  Serious: No
  Sender: RIGEL PHARMACEUTICALS
  Company Number: US-RIGEL PHARMACEUTICALS, INC.-20241000068

PATIENT
  Sex: Male

DRUGS (1)
  1. GAVRETO [Suspect]
     Active Substance: PRALSETINIB
     Indication: Lung neoplasm malignant
     Dosage: 400 MG, QD
     Dates: start: 20240810

REACTIONS (10)
  - Oropharyngeal pain [Unknown]
  - Wrong technique in product usage process [Unknown]
  - Aphonia [Unknown]
  - Visual impairment [Unknown]
  - Muscular weakness [Unknown]
  - Red blood cell count decreased [Unknown]
  - Taste disorder [Unknown]
  - Blood pressure increased [Unknown]
  - Asthenia [Unknown]
  - White blood cell count decreased [Unknown]

NARRATIVE: CASE EVENT DATE: 20240101
